FAERS Safety Report 8900921 (Version 2)
Quarter: 2013Q1

REPORT INFORMATION
  Report Type: Spontaneous
  Country: FR (occurrence: FR)
  Receive Date: 20121109
  Receipt Date: 20130201
  Transmission Date: 20140127
  Serious: Yes (Other)
  Sender: FDA-Public Use
  Company Number: FR-ROCHE-1153079

PATIENT
  Sex: Male
  Weight: 70 kg

DRUGS (3)
  1. MABTHERA [Suspect]
     Indication: RHEUMATOID ARTHRITIS
     Dosage: FIRST CYCLE IN  FEB 2007, THEN IN FEB 2009 AND 3RD CYCLE IN APR 2011, LAST CYCLE OCT/2011
     Route: 042
  2. DAFALGAN [Concomitant]
     Dosage: DOSE: 1 TO 3 GM
     Route: 048
  3. CORTANCYL [Concomitant]
     Dosage: 5MG/DAY
     Route: 065

REACTIONS (3)
  - Ulcerative keratitis [Recovering/Resolving]
  - Leukopenia [Recovering/Resolving]
  - Neutropenia [Recovering/Resolving]
